FAERS Safety Report 15320892 (Version 1)
Quarter: 2018Q3

REPORT INFORMATION
  Report Type: Spontaneous
  Country: US (occurrence: US)
  Receive Date: 20180827
  Receipt Date: 20180827
  Transmission Date: 20181010
  Serious: No
  Sender: FDA-Public Use
  Company Number: US-ASTRAZENECA-2018SE98241

PATIENT
  Age: 22530 Day
  Sex: Female

DRUGS (1)
  1. BYDUREON [Suspect]
     Active Substance: EXENATIDE
     Indication: TYPE 2 DIABETES MELLITUS
     Route: 058
     Dates: start: 20180802

REACTIONS (4)
  - Palmar erythema [Unknown]
  - Pruritus [Unknown]
  - Device issue [Unknown]
  - Insomnia [Unknown]

NARRATIVE: CASE EVENT DATE: 20180731
